FAERS Safety Report 4849844-2 (Version None)
Quarter: 2005Q4

REPORT INFORMATION
  Report Type: 
  Country: None (occurrence: None)
  Receive Date: 20051209
  Receipt Date: 20051130
  Transmission Date: 20060501
  Serious: Yes (Hospitalization, Disabling, Other)
  Sender: FDA-Public Use
  Company Number: ZA-MERCK-0512USA00128

PATIENT
  Age: 73 Year
  Sex: Male
  Weight: 97 kg

DRUGS (6)
  1. VIOXX [Suspect]
     Indication: ARTHRALGIA
     Route: 048
     Dates: start: 20000101, end: 20020101
  2. VIOXX [Suspect]
     Route: 048
     Dates: start: 20030601, end: 20040601
  3. VIOXX [Suspect]
     Indication: BACK PAIN
     Route: 048
     Dates: start: 20000101, end: 20020101
  4. VIOXX [Suspect]
     Route: 048
     Dates: start: 20030601, end: 20040601
  5. ECOTRIN [Concomitant]
     Route: 048
  6. ALLOPURINOL [Concomitant]
     Route: 048

REACTIONS (4)
  - ARTHROPATHY [None]
  - CORONARY ARTERY DISEASE [None]
  - INGUINAL HERNIA [None]
  - SINUS BRADYCARDIA [None]
